FAERS Safety Report 5353954-3 (Version None)
Quarter: 2007Q2

REPORT INFORMATION
  Report Type: 
  Country: None (occurrence: None)
  Receive Date: 20070612
  Receipt Date: 20070531
  Transmission Date: 20071010
  Serious: No
  Sender: FDA-Public Use
  Company Number: US-ASTRAZENECA-2006UW10742

PATIENT
  Sex: Female
  Weight: 103.2 kg

DRUGS (6)
  1. SEROQUEL [Suspect]
     Indication: PSYCHOTIC DISORDER
     Route: 048
     Dates: start: 20021108, end: 20060114
  2. GEODON [Concomitant]
  3. RISPERDAL [Concomitant]
  4. ZYPREXA [Concomitant]
  5. WELLBUTRIN [Concomitant]
  6. ZOLOFT [Concomitant]

REACTIONS (1)
  - DIABETES MELLITUS [None]
